FAERS Safety Report 8345352-5 (Version None)
Quarter: 2012Q2

REPORT INFORMATION
  Report Type: 
  Country: None (occurrence: None)
  Receive Date: 20120402
  Receipt Date: 20110719
  Transmission Date: 20120825
  Serious: Yes (Other)
  Sender: FDA-Public Use
  Company Number: 290844USA

PATIENT
  Age: 25 Year
  Sex: Female

DRUGS (2)
  1. MULTI-VITAMIN [Concomitant]
  2. AMPHETAMINE AND DEXTROAMPHETAMINE SALTS [Suspect]
     Indication: ATTENTION DEFICIT/HYPERACTIVITY DISORDER
     Dosage: 45 MG (45 MG, 1 IN 1 D), ORAL
     Route: 048

REACTIONS (13)
  - DRUG INEFFECTIVE [None]
  - TRANSIENT ISCHAEMIC ATTACK [None]
  - FALL [None]
  - MYOCARDIAL INFARCTION [None]
  - SUPRAVENTRICULAR TACHYCARDIA [None]
  - HYPERTHYROIDISM [None]
  - HYPOAESTHESIA [None]
  - BLOOD SODIUM DECREASED [None]
  - AGITATION [None]
  - ELECTROCARDIOGRAM T WAVE AMPLITUDE DECREASED [None]
  - PARAESTHESIA [None]
  - CEREBROVASCULAR ACCIDENT [None]
  - ALOPECIA [None]
